FAERS Safety Report 8476037 (Version 2)
Quarter: 2012Q4

REPORT INFORMATION
  Report Type: Spontaneous
  Country: US (occurrence: None)
  Receive Date: 20120316
  Receipt Date: 20121015
  Transmission Date: 20130627
  Serious: Yes (Life-Threatening, Hospitalization, Disabling, Other)
  Sender: FDA-Public Use
  Company Number: ACO_29479_2012

PATIENT
  Age: 57 Year
  Sex: Female
  Weight: 65.8 kg

DRUGS (8)
  1. AMPYRA [Suspect]
     Indication: GAIT DISTURBANCE
     Dosage: 10 MG, BID, ORAL
     Route: 048
     Dates: start: 2011, end: 20120102
  2. LISINOPRIL [Concomitant]
  3. EFFEXOR [Concomitant]
  4. SIMVASTATIN (SIMVASTATIN) [Concomitant]
  5. CLONAZEPAM (CLONAZEPAM) [Concomitant]
  6. ALENDRONATE SODIUM [Concomitant]
  7. AMANTADINE (AMANTADINE) [Concomitant]
  8. PROZAC [Concomitant]

REACTIONS (23)
  - Respiratory distress [None]
  - Ejection fraction decreased [None]
  - Petit mal epilepsy [None]
  - Encephalopathy [None]
  - Confusional state [None]
  - Toxic encephalopathy [None]
  - Renal failure acute [None]
  - Dysphagia [None]
  - Aspiration [None]
  - Hallucination, visual [None]
  - Hypotension [None]
  - Cardiac failure congestive [None]
  - Pulmonary oedema [None]
  - Pleural effusion [None]
  - Bundle branch block left [None]
  - Fall [None]
  - Head injury [None]
  - Delirium [None]
  - Psychotic disorder [None]
  - Anxiety [None]
  - Memory impairment [None]
  - Urinary tract infection [None]
  - Drug interaction [None]
